FAERS Safety Report 18960718 (Version 4)
Quarter: 2022Q4

REPORT INFORMATION
  Report Type: Report from Study
  Country: FR (occurrence: None)
  Receive Date: 20210302
  Receipt Date: 20221117
  Transmission Date: 20230112
  Serious: Yes (Hospitalization)
  Sender: FDA-Public Use
  Company Number: FR-ROCHE-2769629

PATIENT
  Age: 75 Year
  Sex: Male
  Weight: 97 kg

DRUGS (2)
  1. ATEZOLIZUMAB [Suspect]
     Active Substance: ATEZOLIZUMAB
     Indication: Bladder cancer
     Dosage: DATE OF LAST DOSE OF ADMINISTRATION: 19/JAN/2021
     Route: 042
  2. BCG VACCINE [Suspect]
     Active Substance: BCG VACCINE
     Indication: Bladder cancer
     Dosage: DATE OF LAST DOSE OF ADMINISTRATION: 02/FEB/2021
     Route: 043
     Dates: start: 20201026

REACTIONS (3)
  - Disseminated Bacillus Calmette-Guerin infection [Recovered/Resolved]
  - Disseminated tuberculosis [Recovered/Resolved]
  - Hepatitis [Recovered/Resolved]

NARRATIVE: CASE EVENT DATE: 20210203
